FAERS Safety Report 4818889-0 (Version None)
Quarter: 2005Q4

REPORT INFORMATION
  Report Type: 
  Country: None (occurrence: None)
  Receive Date: 20051031
  Receipt Date: 20051026
  Transmission Date: 20060501
  Serious: Yes (Death)
  Sender: FDA-Public Use
  Company Number: GBWYE091726OCT05

PATIENT
  Age: 44 Year
  Sex: Male

DRUGS (7)
  1. EFFEXOR [Suspect]
     Route: 048
     Dates: end: 20050601
  2. CLOZARIL [Suspect]
     Indication: SCHIZOPHRENIA
     Dosage: 725 MG 1X PER 1 DAY
     Route: 048
     Dates: start: 19940626
  3. VALPROATE SODIUM [Concomitant]
  4. LAMOTRIGINE [Concomitant]
  5. PIRENZEPINE (PIRENZEPINE) [Concomitant]
  6. SENNA (SENNA) [Concomitant]
  7. RANITIDINE [Concomitant]

REACTIONS (5)
  - AGITATION [None]
  - ANXIETY [None]
  - CARDIAC ARREST [None]
  - DEPRESSED LEVEL OF CONSCIOUSNESS [None]
  - PALLOR [None]
